FAERS Safety Report 7387570-9 (Version None)
Quarter: 2011Q1

REPORT INFORMATION
  Report Type: 
  Country: None (occurrence: None)
  Receive Date: 20110331
  Receipt Date: 20110116
  Transmission Date: 20110831
  Serious: No
  Sender: FDA-Public Use
  Company Number: US-BAYER-2011-005256

PATIENT
  Sex: Female

DRUGS (2)
  1. ALEVE (CAPLET) [Suspect]
     Indication: HEADACHE
     Dosage: 1 DF, UNK, UNKNOWN BOTTLE COUNT
     Route: 048
  2. ALEVE (CAPLET) [Suspect]
     Indication: ARTHRALGIA

REACTIONS (1)
  - NO ADVERSE EVENT [None]
